FAERS Safety Report 14327190 (Version 1)
Quarter: 2017Q4

REPORT INFORMATION
  Report Type: Spontaneous
  Country: US (occurrence: US)
  Receive Date: 20171227
  Receipt Date: 20171227
  Transmission Date: 20180321
  Serious: Yes (Life-Threatening, Disabling)
  Sender: FDA-Public Use
  Company Number: None

PATIENT
  Age: 73 Year
  Sex: Female
  Weight: 62.6 kg

DRUGS (6)
  1. MONTELUKAST [Concomitant]
     Active Substance: MONTELUKAST SODIUM
  2. LEVOTHYROXINE. [Concomitant]
     Active Substance: LEVOTHYROXINE
  3. PANTOPRAZOLE [Concomitant]
     Active Substance: PANTOPRAZOLE
  4. 1 A DAY VITAMIN [Concomitant]
     Active Substance: VITAMINS
  5. SIMVASTATIN TAB 40MG [Suspect]
     Active Substance: SIMVASTATIN
     Indication: BLOOD CHOLESTEROL
     Route: 048
     Dates: start: 20050202, end: 20170910
  6. VITAMIN D [Concomitant]
     Active Substance: CHOLECALCIFEROL

REACTIONS (10)
  - Insomnia [None]
  - Pain [None]
  - Nervousness [None]
  - Therapy change [None]
  - Product lot number issue [None]
  - Gait inability [None]
  - Paraesthesia [None]
  - Condition aggravated [None]
  - Hypoaesthesia [None]
  - Burning sensation [None]

NARRATIVE: CASE EVENT DATE: 20170701
